FAERS Safety Report 15433561 (Version 1)
Quarter: 2018Q3

REPORT INFORMATION
  Report Type: Spontaneous
  Country: SA (occurrence: SA)
  Receive Date: 20180927
  Receipt Date: 20180927
  Transmission Date: 20181010
  Serious: Yes (Death, Hospitalization, Other)
  Sender: FDA-Public Use
  Company Number: SA-ASTELLAS-2018US041565

PATIENT
  Age: 56 Year
  Sex: Female

DRUGS (3)
  1. PREDNISONE. [Suspect]
     Active Substance: PREDNISONE
     Indication: LIVER TRANSPLANT
     Route: 065
  2. TACROLIMUS. [Suspect]
     Active Substance: TACROLIMUS
     Indication: LIVER TRANSPLANT
     Route: 065
  3. MYCOPHENOLATE MOFETIL. [Suspect]
     Active Substance: MYCOPHENOLATE MOFETIL
     Indication: LIVER TRANSPLANT
     Route: 065

REACTIONS (9)
  - Subarachnoid haemorrhage [Fatal]
  - Aspergillus infection [Unknown]
  - Bradycardia [Unknown]
  - Multiple organ dysfunction syndrome [Fatal]
  - Atrioventricular block complete [Unknown]
  - Pneumonia klebsiella [Unknown]
  - Cardiogenic shock [Fatal]
  - Pneumonia [Unknown]
  - Endocarditis [Unknown]

NARRATIVE: CASE EVENT DATE: 20160710
